FAERS Safety Report 9120444 (Version 1)
Quarter: 2013Q1

REPORT INFORMATION
  Report Type: Report from Study
  Country: GB (occurrence: GB)
  Receive Date: 20130226
  Receipt Date: 20130226
  Transmission Date: 20140127
  Serious: Yes (Hospitalization)
  Sender: FDA-Public Use
  Company Number: GB-ROCHE-1193582

PATIENT
  Age: 88 Year
  Sex: Female

DRUGS (8)
  1. RANIBIZUMAB [Suspect]
     Indication: PRODUCT USED FOR UNKNOWN INDICATION
     Route: 050
     Dates: start: 20100417
  2. CALCIUM CARBONATE [Concomitant]
  3. LACTULOSE [Concomitant]
  4. PARACETAMOL [Concomitant]
  5. PREDNISOLONE [Concomitant]
  6. FERROUS FUMARATE [Concomitant]
  7. ALENDRONIC ACID [Concomitant]
  8. FLUCLOXACILLIN [Concomitant]
     Route: 065
     Dates: start: 20120124

REACTIONS (3)
  - Ophthalmic herpes zoster [Unknown]
  - Ulcer [Unknown]
  - Corneal infection [Recovering/Resolving]
